FAERS Safety Report 4781622-5 (Version None)
Quarter: 2005Q3

REPORT INFORMATION
  Report Type: 
  Country: None (occurrence: None)
  Receive Date: 20050927
  Receipt Date: 20050916
  Transmission Date: 20060218
  Serious: Yes (Hospitalization)
  Sender: FDA-Public Use
  Company Number: 2005096147

PATIENT
  Sex: Female

DRUGS (3)
  1. NEURONTIN [Suspect]
     Indication: NEUROPATHIC PAIN
     Dosage: 1800 MG (600 MG, 3 IN 1 D), ORAL
     Route: 048
     Dates: start: 20040701
  2. METFORMIN HCL [Concomitant]
  3. PRANDIN [Concomitant]

REACTIONS (6)
  - BONE DISORDER [None]
  - DIABETIC FOOT [None]
  - ECONOMIC PROBLEM [None]
  - MUSCULOSKELETAL DISORDER [None]
  - POST PROCEDURAL COMPLICATION [None]
  - TREATMENT NONCOMPLIANCE [None]
